FAERS Safety Report 13953240 (Version 1)
Quarter: 2017Q3

REPORT INFORMATION
  Report Type: Spontaneous
  Country: US (occurrence: US)
  Receive Date: 20170911
  Receipt Date: 20170911
  Transmission Date: 20171128
  Serious: No
  Sender: FDA-Public Use
  Company Number: US-LEO PHARMA-304515

PATIENT
  Sex: Male

DRUGS (2)
  1. PICATO [Suspect]
     Active Substance: INGENOL MEBUTATE
     Indication: MALIGNANT MELANOMA
     Dosage: 1 TUBE APPLIED TO 3X3 AREA OF LEFT SIDE OF FACE AND 1 TUBE APPLIED TO 3X3 AREA OF RIGHT SIDE OF FACE
     Route: 061
     Dates: start: 20170831
  2. PICATO [Suspect]
     Active Substance: INGENOL MEBUTATE
     Dosage: APPLIED 1.5 TUBES, UNKNOWN THERAPY DATES
     Route: 061

REACTIONS (3)
  - Application site erythema [Unknown]
  - Product use in unapproved indication [Unknown]
  - Application site pain [Unknown]

NARRATIVE: CASE EVENT DATE: 20170831
